FAERS Safety Report 15462766 (Version 2)
Quarter: 2018Q4

REPORT INFORMATION
  Report Type: Report from Study
  Country: BR (occurrence: BR)
  Receive Date: 20181004
  Receipt Date: 20181015
  Transmission Date: 20190204
  Serious: Yes (Hospitalization, Other)
  Sender: FDA-Public Use
  Company Number: BR-TAKEDA-2018TUS009074

PATIENT
  Age: 43 Year
  Sex: Female

DRUGS (2)
  1. VEDOLIZUMAB [Suspect]
     Active Substance: VEDOLIZUMAB
     Indication: CROHN^S DISEASE
     Dosage: UNK
     Route: 042
     Dates: start: 20180223
  2. TRAMAL [Concomitant]
     Active Substance: TRAMADOL
     Dosage: UNK
     Route: 065

REACTIONS (15)
  - Constipation [Recovering/Resolving]
  - Bladder discomfort [Recovering/Resolving]
  - Intestinal perforation [Recovering/Resolving]
  - Rash erythematous [Recovering/Resolving]
  - Abdominal pain [Recovered/Resolved]
  - Flatulence [Recovering/Resolving]
  - Fatigue [Recovering/Resolving]
  - Tremor [Recovering/Resolving]
  - Dermatitis allergic [Recovering/Resolving]
  - Crohn^s disease [Recovering/Resolving]
  - Gastrooesophageal reflux disease [Recovering/Resolving]
  - Paraesthesia [Recovered/Resolved]
  - Sciatica [Recovering/Resolving]
  - Decreased immune responsiveness [Recovering/Resolving]
  - Nausea [Recovered/Resolved]

NARRATIVE: CASE EVENT DATE: 20180226
